FAERS Safety Report 14270035 (Version 2)
Quarter: 2019Q1

REPORT INFORMATION
  Report Type: Report from Study
  Country: NL (occurrence: NL)
  Receive Date: 20171211
  Receipt Date: 20190117
  Transmission Date: 20190417
  Serious: Yes (Life-Threatening, Hospitalization)
  Sender: FDA-Public Use
  Company Number: NL-ASTRAZENECA-2017SE97536

PATIENT
  Age: 76 Year
  Sex: Male

DRUGS (21)
  1. GLICLAZIDE [Concomitant]
     Active Substance: GLICLAZIDE
     Indication: HYPOGLYCAEMIA
     Route: 065
     Dates: start: 20160829, end: 20170925
  2. OMEPRAZOL [Concomitant]
     Active Substance: OMEPRAZOLE
     Indication: HICCUPS
     Route: 065
     Dates: start: 20160927, end: 20170920
  3. ACALABRUTINIB. [Suspect]
     Active Substance: ACALABRUTINIB
     Indication: CHRONIC LYMPHOCYTIC LEUKAEMIA
     Route: 048
     Dates: start: 20170306, end: 20170512
  4. SALMETEROL [Concomitant]
     Active Substance: SALMETEROL
     Indication: DYSPNOEA
     Dosage: 100/250 MG TWO TIMES A DAY
     Route: 065
     Dates: start: 20161115, end: 20170925
  5. ACALABRUTINIB. [Suspect]
     Active Substance: ACALABRUTINIB
     Indication: CHRONIC LYMPHOCYTIC LEUKAEMIA
     Route: 048
     Dates: start: 20170524, end: 20170524
  6. ACALABRUTINIB. [Suspect]
     Active Substance: ACALABRUTINIB
     Indication: CHRONIC LYMPHOCYTIC LEUKAEMIA
     Route: 048
     Dates: start: 20170723, end: 20170820
  7. ACALABRUTINIB. [Suspect]
     Active Substance: ACALABRUTINIB
     Indication: CHRONIC LYMPHOCYTIC LEUKAEMIA
     Route: 048
     Dates: start: 20160926, end: 20170305
  8. CYANOCOBALAMIN. [Concomitant]
     Active Substance: CYANOCOBALAMIN
     Indication: THROMBOCYTOPENIA
     Route: 065
     Dates: start: 20160930, end: 20170911
  9. ASCAL [Concomitant]
     Indication: HYPERTENSION
     Route: 065
     Dates: start: 20161017
  10. ACALABRUTINIB. [Suspect]
     Active Substance: ACALABRUTINIB
     Indication: CHRONIC LYMPHOCYTIC LEUKAEMIA
     Route: 048
     Dates: start: 20170821
  11. METFORMINE [Concomitant]
     Active Substance: METFORMIN HYDROCHLORIDE
     Indication: HYPOGLYCAEMIA
     Route: 065
     Dates: start: 20160725
  12. PRAVASTATINE [Concomitant]
     Active Substance: PRAVASTATIN
     Indication: HYPERLIPIDAEMIA
     Route: 065
     Dates: start: 20100412
  13. PREGABALIN. [Concomitant]
     Active Substance: PREGABALIN
     Indication: NEURALGIA
     Route: 065
     Dates: start: 20170916, end: 20170925
  14. TROPICAMIDE. [Concomitant]
     Active Substance: TROPICAMIDE
     Indication: MYDRIASIS
     Dosage: AS NEEDED
     Route: 065
     Dates: start: 20170509
  15. ACALABRUTINIB. [Suspect]
     Active Substance: ACALABRUTINIB
     Indication: CHRONIC LYMPHOCYTIC LEUKAEMIA
     Route: 048
     Dates: start: 20170525, end: 20170720
  16. ACALABRUTINIB. [Suspect]
     Active Substance: ACALABRUTINIB
     Indication: CHRONIC LYMPHOCYTIC LEUKAEMIA
     Route: 048
     Dates: start: 20170721, end: 20170722
  17. SALBUTAMOL [Concomitant]
     Active Substance: ALBUTEROL
     Indication: DYSPNOEA
     Route: 065
     Dates: start: 20161101, end: 20170921
  18. PREGABALIN. [Concomitant]
     Active Substance: PREGABALIN
     Indication: NEURALGIA
     Route: 065
     Dates: start: 20171106
  19. ACALABRUTINIB. [Suspect]
     Active Substance: ACALABRUTINIB
     Indication: CHRONIC LYMPHOCYTIC LEUKAEMIA
     Route: 048
     Dates: start: 20170513, end: 20170513
  20. ACALABRUTINIB. [Suspect]
     Active Substance: ACALABRUTINIB
     Indication: CHRONIC LYMPHOCYTIC LEUKAEMIA
     Route: 048
     Dates: start: 20170514, end: 20170523
  21. PREGABALIN. [Concomitant]
     Active Substance: PREGABALIN
     Indication: NEURALGIA
     Route: 065
     Dates: start: 20170324, end: 20170912

REACTIONS (1)
  - Hyponatraemia [Recovered/Resolved]

NARRATIVE: CASE EVENT DATE: 20170921
